FAERS Safety Report 9523240 (Version 1)
Quarter: 2013Q1

REPORT INFORMATION
  Report Type: Spontaneous
  Country: US (occurrence: None)
  Receive Date: 20130305
  Receipt Date: 20130305
  Transmission Date: 20140127
  Serious: Yes (Other)
  Sender: FDA-Public Use
  Company Number: 163-21880-12072342

PATIENT
  Age: 77 Year
  Sex: Female
  Weight: 77.11 kg

DRUGS (5)
  1. REVLIMID [Suspect]
     Indication: MYELODYSPLASTIC SYNDROME
     Dosage: 6/2012 - DISCONTINUED
     Route: 048
     Dates: start: 201206
  2. RISPERDAL (RISPERIDONE) [Concomitant]
  3. CELEXA (CITALOPRAM HYDROBROMIDE) [Concomitant]
  4. ACCUPRIL (QUINAPRIL HYDROCHLORIDE) [Concomitant]
  5. METFORMIN (METFORMIN) [Concomitant]

REACTIONS (3)
  - Full blood count decreased [None]
  - Myelodysplastic syndrome [None]
  - Disease progression [None]
